FAERS Safety Report 10480726 (Version 1)
Quarter: 2014Q3

REPORT INFORMATION
  Report Type: Spontaneous
  Country: US (occurrence: None)
  Receive Date: 20140908
  Receipt Date: 20140908
  Transmission Date: 20150326
  Serious: Yes (Other)
  Sender: FDA-Public Use
  Company Number: 382078

PATIENT
  Age: 52 Year
  Sex: Female

DRUGS (18)
  1. METFORMIN HCL (METFORMIN HYDROCHLORIDE) [Concomitant]
  2. OMEGA 3 /01333901/ (FISH OIL, TOCOPHEROL) [Concomitant]
  3. MULTIVITAMIN /00097801/ (ASCORBIC ACID, CALCIUM PANTOTHENATE, ERGOCALCIFEROL, NICOTINAMIDE, PYRIDOXINE HYDROCHLORIDE, RETINOL, RIBOFLAVIN, THIAMINE HYDROCHLORIDE) [Concomitant]
  4. LOSARTAN POTASSIUM. [Concomitant]
     Active Substance: LOSARTAN POTASSIUM
  5. VICTOZA [Suspect]
     Active Substance: LIRAGLUTIDE
     Indication: TYPE 2 DIABETES MELLITUS
     Dosage: UNKNOWN
     Route: 058
     Dates: start: 20130417, end: 201306
  6. ASPIRIN (ACETYLSALICYLIC ACID) [Concomitant]
     Active Substance: ASPIRIN
  7. VITAMIN C /00008001/ (ASCORBIC ACID) [Concomitant]
  8. FLONASE /00908302/ (MOMETASONE FUROATE) [Concomitant]
  9. VENTOLIN HFA [Concomitant]
     Active Substance: ALBUTEROL SULFATE
  10. VITAMIN D3 [Concomitant]
     Active Substance: CHOLECALCIFEROL
  11. SERTRALINE [Concomitant]
     Active Substance: SERTRALINE HYDROCHLORIDE
  12. LANTUS [Concomitant]
     Active Substance: INSULIN GLARGINE
  13. LORAZEPAM. [Concomitant]
     Active Substance: LORAZEPAM
  14. ZOLPIDEM TARTATE [Concomitant]
  15. ZYRTEC [Concomitant]
     Active Substance: CETIRIZINE HYDROCHLORIDE
  16. AXERT (ALMOTRIPTAN MALATE) [Concomitant]
  17. CALCIUM [Concomitant]
     Active Substance: CALCIUM
  18. CRESTOR [Concomitant]
     Active Substance: ROSUVASTATIN CALCIUM

REACTIONS (1)
  - Pancreatitis [None]

NARRATIVE: CASE EVENT DATE: 20130626
